FAERS Safety Report 7635530-2 (Version None)
Quarter: 2011Q3

REPORT INFORMATION
  Report Type: 
  Country: None (occurrence: None)
  Receive Date: 20110718
  Receipt Date: 20110705
  Transmission Date: 20111222
  Serious: Yes (Other)
  Sender: FDA-Public Use
  Company Number: 1000022031

PATIENT
  Age: 46 Year
  Sex: Male

DRUGS (4)
  1. PREDNISOLONE [Concomitant]
  2. CYCLOSPORINE [Suspect]
     Dosage: 125 MG (125 MG, 1 IN 1 D)
  3. DILTIAZEM [Suspect]
     Dosage: 120 MG (120 MG, 1 IN 1 D)
  4. MYCOPHENOLATE MOFETIL [Concomitant]

REACTIONS (3)
  - NERVE CONDUCTION STUDIES ABNORMAL [None]
  - PERIPHERAL SENSORY NEUROPATHY [None]
  - SENSORY DISTURBANCE [None]
